FAERS Safety Report 19476925 (Version 1)
Quarter: 2021Q2

REPORT INFORMATION
  Report Type: Spontaneous
  Country: US (occurrence: US)
  Receive Date: 20210629
  Receipt Date: 20210629
  Transmission Date: 20210717
  Serious: No
  Sender: FDA-Public Use
  Company Number: None

PATIENT
  Age: 22 Year
  Sex: Male
  Weight: 72 kg

DRUGS (3)
  1. VITAMIN D3 [Concomitant]
     Active Substance: CHOLECALCIFEROL
  2. CELECOXIB. [Suspect]
     Active Substance: CELECOXIB
     Indication: DESMOID TUMOUR
     Dosage: ?          QUANTITY:1 CAPSULE(S);?
     Route: 048
     Dates: start: 20210530, end: 20210625
  3. MAGNESIUM [Concomitant]
     Active Substance: MAGNESIUM

REACTIONS (3)
  - Hyperacusis [None]
  - Tinnitus [None]
  - Ear pain [None]

NARRATIVE: CASE EVENT DATE: 20210624
